FAERS Safety Report 21088589 (Version 3)
Quarter: 2022Q4

REPORT INFORMATION
  Report Type: Spontaneous
  Country: US (occurrence: US)
  Receive Date: 20220715
  Receipt Date: 20221010
  Transmission Date: 20230113
  Serious: Yes (Other)
  Sender: FDA-Public Use
  Company Number: US-BRISTOL-MYERS SQUIBB COMPANY-2022-072952

PATIENT
  Age: 69 Year
  Sex: Female
  Weight: 61.2 kg

DRUGS (17)
  1. REVLIMID [Suspect]
     Active Substance: LENALIDOMIDE
     Indication: Product used for unknown indication
     Route: 065
     Dates: start: 20200703
  2. REVLIMID [Suspect]
     Active Substance: LENALIDOMIDE
     Route: 065
     Dates: start: 20220621
  3. DEXAMETHASONE [Suspect]
     Active Substance: DEXAMETHASONE
     Indication: Product used for unknown indication
     Route: 065
  4. IXAZOMIB [Suspect]
     Active Substance: IXAZOMIB
     Indication: Product used for unknown indication
     Route: 065
     Dates: start: 20200810, end: 20210106
  5. DARATUMUMAB [Concomitant]
     Active Substance: DARATUMUMAB
     Indication: Product used for unknown indication
     Dates: start: 20201019
  6. OMEPRAZOLE [Concomitant]
     Active Substance: OMEPRAZOLE
     Indication: Product used for unknown indication
     Dosage: ORAL DELAYED RELEASE TABLET
     Route: 048
  7. OMEPRAZOLE [Concomitant]
     Active Substance: OMEPRAZOLE
     Route: 048
  8. ACYCLOVIR [Concomitant]
     Active Substance: ACYCLOVIR
     Indication: Product used for unknown indication
     Route: 048
  9. ACYCLOVIR [Concomitant]
     Active Substance: ACYCLOVIR
     Route: 048
  10. POTASSIUM CHLORIDE [Concomitant]
     Active Substance: POTASSIUM CHLORIDE
     Indication: Product used for unknown indication
     Dosage: ER TAB
     Route: 048
  11. BACTRIM [Concomitant]
     Active Substance: SULFAMETHOXAZOLE\TRIMETHOPRIM
     Indication: Product used for unknown indication
     Dosage: SULFAMETHAOXAZOLE -TRIMETHOPRIM 400 MG -80 MG - WEEKENDS
     Route: 048
  12. RIVAROXABAN [Concomitant]
     Active Substance: RIVAROXABAN
     Indication: Product used for unknown indication
     Dosage: MUST ADMINISTER WITH MEAL/FOOD
     Route: 048
  13. LORAZEPAM [Concomitant]
     Active Substance: LORAZEPAM
     Indication: Nausea
     Dosage: 0.5 MG TWICE A DAY
     Route: 048
  14. LISINOPRIL [Concomitant]
     Active Substance: LISINOPRIL
     Indication: Product used for unknown indication
     Route: 048
  15. FUROSEMIDE [Concomitant]
     Active Substance: FUROSEMIDE
     Indication: Product used for unknown indication
     Route: 048
  16. CARFILZOMIB [Concomitant]
     Active Substance: CARFILZOMIB
     Indication: Product used for unknown indication
     Dates: start: 20210204
  17. MELPHALAN HYDROCHLORIDE [Concomitant]
     Active Substance: MELPHALAN HYDROCHLORIDE
     Indication: Product used for unknown indication
     Dates: start: 20220310

REACTIONS (23)
  - Product dose omission issue [Unknown]
  - Neuropathy peripheral [Unknown]
  - Fatigue [Unknown]
  - Decreased appetite [Unknown]
  - Diarrhoea [Unknown]
  - Insomnia [Unknown]
  - Anxiety [Unknown]
  - Depression [Unknown]
  - Small intestine ulcer [Unknown]
  - Blood creatinine increased [Unknown]
  - Hypokalaemia [Unknown]
  - Dysphagia [Unknown]
  - Pyrexia [Unknown]
  - Hyperbilirubinaemia [Unknown]
  - Hypothyroidism [Unknown]
  - Pollakiuria [Unknown]
  - Polyuria [Unknown]
  - Panniculitis [Unknown]
  - Pleural effusion [Unknown]
  - Pleural thickening [Unknown]
  - Pulmonary embolism [Unknown]
  - Thyroid mass [Unknown]
  - Anaemia [Unknown]

NARRATIVE: CASE EVENT DATE: 20201215
